FAERS Safety Report 4775766-1 (Version None)
Quarter: 2005Q3

REPORT INFORMATION
  Report Type: 
  Country: None (occurrence: None)
  Receive Date: 20050922
  Receipt Date: 20050914
  Transmission Date: 20060218
  Serious: Yes (Other)
  Sender: FDA-Public Use
  Company Number: 200516587US

PATIENT
  Sex: Female
  Weight: 77 kg

DRUGS (5)
  1. LANTUS [Suspect]
     Indication: DIABETES MELLITUS INSULIN-DEPENDENT
     Dosage: DOSE UNIT: UNITS
     Route: 058
     Dates: start: 20040101
  2. LISINOPRIL [Concomitant]
     Route: 048
  3. PRAVACHOL [Concomitant]
     Route: 048
  4. MULTIVITAMINS, PLAIN [Concomitant]
     Dosage: DOSE: NOT PROVIDED
  5. SOY ISOFLAVONES [Concomitant]

REACTIONS (5)
  - BLINDNESS UNILATERAL [None]
  - GLYCOSYLATED HAEMOGLOBIN INCREASED [None]
  - INTRAOCULAR PRESSURE INCREASED [None]
  - RETINAL DETACHMENT [None]
  - RETINAL HAEMORRHAGE [None]
